FAERS Safety Report 4282361-X (Version None)
Quarter: 2004Q1

REPORT INFORMATION
  Report Type: 
  Country: None (occurrence: None)
  Receive Date: 20040120
  Receipt Date: 20031031
  Transmission Date: 20041129
  Serious: Yes (Other)
  Sender: FDA-Public Use
  Company Number: US-JNJFOC-20031100574

PATIENT
  Age: 46 Year
  Sex: Female
  Weight: 138.8007 kg

DRUGS (2)
  1. COPPER T MODEL TCU 380A [Suspect]
     Indication: CONTRACEPTION
     Dosage: 1 DOSE (S), INTRAUTERINE
     Route: 015
     Dates: start: 19920101
  2. EFFEXOR [Concomitant]

REACTIONS (1)
  - IUCD COMPLICATION [None]
